FAERS Safety Report 23722828 (Version 1)
Quarter: 2024Q2

REPORT INFORMATION
  Report Type: Report from Study
  Country: FR (occurrence: FR)
  Receive Date: 20240409
  Receipt Date: 20240409
  Transmission Date: 20240715
  Serious: Yes (Other)
  Sender: FDA-Public Use
  Company Number: FR-AstraZeneca-2024A071590

PATIENT
  Sex: Female
  Weight: 52 kg

DRUGS (3)
  1. GEMCITABINE HYDROCHLORIDE [Suspect]
     Active Substance: GEMCITABINE HYDROCHLORIDE
     Indication: Biliary cancer metastatic
     Dosage: UNK
     Dates: start: 20231006, end: 20231122
  2. CISPLATIN [Suspect]
     Active Substance: CISPLATIN
     Indication: Biliary cancer metastatic
     Dosage: UNK
     Dates: start: 20231006, end: 20231122
  3. IMFINZI [Suspect]
     Active Substance: DURVALUMAB
     Indication: Biliary cancer metastatic
     Dosage: 1500 MG, EVERY 3 WEEKS
     Route: 042
     Dates: start: 20231006, end: 20231122

REACTIONS (2)
  - Toxicity to various agents [Recovered/Resolved]
  - Renal failure [Unknown]
